FAERS Safety Report 18324577 (Version 1)
Quarter: 2020Q3

REPORT INFORMATION
  Report Type: Spontaneous
  Country: US (occurrence: US)
  Receive Date: 20200928
  Receipt Date: 20200928
  Transmission Date: 20201103
  Serious: No
  Sender: FDA-Public Use
  Company Number: US-009507513-2009USA010051

PATIENT
  Age: 74 Year
  Sex: Female

DRUGS (8)
  1. PRINIVIL [Suspect]
     Active Substance: LISINOPRIL
  2. RANITIDINE. [Suspect]
     Active Substance: RANITIDINE
  3. OMEPRAZOLE. [Suspect]
     Active Substance: OMEPRAZOLE
  4. ASPIRIN. [Suspect]
     Active Substance: ASPIRIN
  5. IBUPROFEN. [Suspect]
     Active Substance: IBUPROFEN
  6. DILTIAZEM. [Suspect]
     Active Substance: DILTIAZEM
     Dosage: EXTENDED RELEASE
  7. FLUOXETINE [Suspect]
     Active Substance: FLUOXETINE HYDROCHLORIDE
  8. PRAVASTATIN. [Suspect]
     Active Substance: PRAVASTATIN

REACTIONS (1)
  - Intentional overdose [Unknown]
